FAERS Safety Report 4286801-1 (Version None)
Quarter: 2004Q1

REPORT INFORMATION
  Report Type: 
  Country: None (occurrence: None)
  Receive Date: 20040204
  Receipt Date: 20040122
  Transmission Date: 20041129
  Serious: Yes (Hospitalization)
  Sender: FDA-Public Use
  Company Number: MEDI-0001370(0)

PATIENT
  Age: 4 Month
  Sex: Male

DRUGS (2)
  1. SYNAGIS [Suspect]
     Indication: ANTIVIRAL PROPHYLAXIS
     Dosage: UNKNOWN, 1 IN 30 D, INTRA-MUSCULAR
     Route: 030
     Dates: start: 20031101, end: 20031201
  2. SYNAGIS [Suspect]
     Indication: ANTIVIRAL PROPHYLAXIS
     Dosage: UNKNOWN, 1 IN 30 D, INTRA-MUSCULAR
     Route: 030
     Dates: start: 20031101

REACTIONS (3)
  - BRONCHITIS [None]
  - PLATELET COUNT DECREASED [None]
  - RESPIRATORY SYNCYTIAL VIRUS INFECTION [None]
